FAERS Safety Report 10237091 (Version 1)
Quarter: 2014Q1

REPORT INFORMATION
  Report Type: Spontaneous
  Country: US (occurrence: None)
  Receive Date: 20140306
  Receipt Date: 20140306
  Transmission Date: 20141002
  Serious: Yes (Other)
  Sender: FDA-Public Use
  Company Number: 163-21880-13081900

PATIENT
  Age: 60 Year
  Sex: Male

DRUGS (3)
  1. REVLIMID (LENALIDOMIDE) (10 MILIGRAM, CAPSULES) [Suspect]
     Indication: PLASMA CELL MYELOMA
     Route: 048
     Dates: start: 20130709, end: 20130724
  2. BARACLUDE (ENTECAVIR) (UNKNOWN) [Concomitant]
  3. BACTRIM DS (BACTRIM) (UNKNOWN) [Concomitant]

REACTIONS (3)
  - Road traffic accident [None]
  - Cognitive disorder [None]
  - Skin odour abnormal [None]
